FAERS Safety Report 13040133 (Version 1)
Quarter: 2016Q4

REPORT INFORMATION
  Report Type: Spontaneous
  Country: US (occurrence: US)
  Receive Date: 20161219
  Receipt Date: 20161219
  Transmission Date: 20170207
  Serious: Yes (Life-Threatening, Hospitalization)
  Sender: FDA-Public Use
  Company Number: US-BAYER-2016-239679

PATIENT
  Age: 41 Year
  Sex: Female

DRUGS (2)
  1. NITROGLYCERIN. [Concomitant]
     Active Substance: NITROGLYCERIN
     Indication: CHEST PAIN
     Dosage: UNK
  2. ACETYLSALICYLIC ACID (} 100 MG) [Suspect]
     Active Substance: ASPIRIN
     Indication: CHEST PAIN
     Dosage: UNK

REACTIONS (8)
  - Confusional state [Recovered/Resolved]
  - Tachypnoea [Recovered/Resolved]
  - Hyperhidrosis [Recovered/Resolved]
  - Blood bicarbonate decreased [Recovered/Resolved]
  - Chest pain [Recovered/Resolved]
  - Toxicity to various agents [Recovered/Resolved]
  - Anion gap increased [Recovered/Resolved]
  - Hypoacusis [Recovered/Resolved]
